FAERS Safety Report 4515854-8 (Version None)
Quarter: 2004Q4

REPORT INFORMATION
  Report Type: 
  Country: None (occurrence: None)
  Receive Date: 20041001
  Receipt Date: 20031106
  Transmission Date: 20050328
  Serious: Yes (Hospitalization)
  Sender: FDA-Public Use
  Company Number: TPA2003A01544

PATIENT
  Sex: 0

DRUGS (2)
  1. ACTOS [Suspect]
     Dosage: 30 MG, 1 IN 1 D, PER ORAL
     Route: 048
  2. GLUCOVANCE (GLIBOMET) [Concomitant]

REACTIONS (1)
  - OEDEMA [None]
